FAERS Safety Report 13552645 (Version 1)
Quarter: 2017Q2

REPORT INFORMATION
  Report Type: Report from Study
  Country: US (occurrence: US)
  Receive Date: 20170517
  Receipt Date: 20170517
  Transmission Date: 20170830
  Serious: Yes (Hospitalization)
  Sender: FDA-Public Use
  Company Number: US-ASTRAZENECA-2017SE51076

PATIENT
  Age: 746 Month
  Sex: Female
  Weight: 58 kg

DRUGS (2)
  1. AZD2281 [Suspect]
     Active Substance: OLAPARIB
     Indication: OVARIAN EPITHELIAL CANCER
     Dosage: 11800MG TOTAL DOSE
     Route: 048
     Dates: start: 20161221
  2. AZD2171 [Suspect]
     Active Substance: CEDIRANIB
     Indication: OVARIAN EPITHELIAL CANCER
     Dosage: 840MG TOTAL DOSE
     Route: 048
     Dates: start: 20161221

REACTIONS (1)
  - Pneumothorax [Recovering/Resolving]

NARRATIVE: CASE EVENT DATE: 20170411
